FAERS Safety Report 9371079 (Version 2)
Quarter: 2013Q4

REPORT INFORMATION
  Report Type: Report from Study
  Country: US (occurrence: US)
  Receive Date: 20130627
  Receipt Date: 20131218
  Transmission Date: 20140711
  Serious: Yes (Hospitalization)
  Sender: FDA-Public Use
  Company Number: US-ROCHE-1241041

PATIENT
  Age: 70 Year
  Sex: Male

DRUGS (9)
  1. RITUXAN [Suspect]
     Indication: CHRONIC LYMPHOCYTIC LEUKAEMIA
     Route: 042
     Dates: start: 20130410
  2. AMIODARONE [Concomitant]
     Route: 065
  3. ASPIRIN [Concomitant]
     Route: 065
  4. BENAZEPRIL [Concomitant]
     Route: 065
  5. CRESTOR [Concomitant]
     Route: 065
  6. DOXAZOSIN [Concomitant]
     Dosage: AT BEDTIME
     Route: 065
  7. LASIX [Concomitant]
     Dosage: AT BEDTIME
     Route: 065
  8. CYTOXAN [Concomitant]
     Route: 065
     Dates: start: 20130410
  9. FLUDARABINE [Concomitant]
     Route: 065
     Dates: start: 20130410

REACTIONS (11)
  - Dyspnoea [Recovering/Resolving]
  - Local swelling [Recovering/Resolving]
  - Movement disorder [Recovering/Resolving]
  - Oedema peripheral [Recovering/Resolving]
  - Chest discomfort [Recovering/Resolving]
  - Respiratory disorder [Recovering/Resolving]
  - Leukocytosis [Unknown]
  - Hypoxia [Unknown]
  - Anaemia [Unknown]
  - Sinus bradycardia [Unknown]
  - Pleural effusion [Unknown]
